FAERS Safety Report 15725923 (Version 1)
Quarter: 2018Q4

REPORT INFORMATION
  Report Type: Spontaneous
  Country: CA (occurrence: CA)
  Receive Date: 20181216
  Receipt Date: 20181216
  Transmission Date: 20190205
  Serious: Yes (Other)
  Sender: FDA-Public Use
  Company Number: PHHY2018CA184191

PATIENT
  Sex: Female

DRUGS (3)
  1. IMATINIB. [Suspect]
     Active Substance: IMATINIB MESYLATE
     Indication: CHRONIC MYELOID LEUKAEMIA
     Dosage: 400 MG, UNK
     Route: 065
     Dates: start: 2007, end: 2018
  2. DASATINIB. [Suspect]
     Active Substance: DASATINIB
     Dosage: 50 MG, UNK
     Route: 065
     Dates: end: 2018
  3. DASATINIB. [Suspect]
     Active Substance: DASATINIB
     Indication: CHRONIC MYELOID LEUKAEMIA
     Dosage: 70 MG, UNK
     Route: 065
     Dates: start: 2003

REACTIONS (3)
  - Drug intolerance [Unknown]
  - Pleural effusion [Recovered/Resolved]
  - Therapeutic response decreased [Recovered/Resolved]
